FAERS Safety Report 7554741-8 (Version None)
Quarter: 2011Q2

REPORT INFORMATION
  Report Type: 
  Country: None (occurrence: None)
  Receive Date: 20110615
  Receipt Date: 20110615
  Transmission Date: 20111010
  Serious: No
  Sender: FDA-Public Use
  Company Number: None

PATIENT
  Age: 54 Year
  Sex: Female

DRUGS (1)
  1. HYDRALAZINE HCL [Suspect]
     Dates: start: 20090226, end: 20090710

REACTIONS (10)
  - HEPATITIS [None]
  - HEPATIC FIBROSIS [None]
  - NAUSEA [None]
  - VOMITING [None]
  - WEIGHT DECREASED [None]
  - CAROTID ARTERY OCCLUSION [None]
  - LIVER DISORDER [None]
  - FATIGUE [None]
  - CHOLESTASIS [None]
  - HEPATIC NECROSIS [None]
